FAERS Safety Report 22197538 (Version 2)
Quarter: 2023Q2

REPORT INFORMATION
  Report Type: Spontaneous
  Country: DE (occurrence: DE)
  Receive Date: 20230411
  Receipt Date: 20230417
  Transmission Date: 20230722
  Serious: Yes (Hospitalization, Other)
  Sender: FDA-Public Use
  Company Number: DE-BRISTOL-MYERS SQUIBB COMPANY-2023-014009

PATIENT
  Age: 74 Year
  Sex: Male
  Weight: 53.7 kg

DRUGS (12)
  1. OXALIPLATIN [Suspect]
     Active Substance: OXALIPLATIN
     Indication: Oesophageal adenocarcinoma
     Dosage: 148 MG, BIW
     Route: 042
     Dates: start: 20220722
  2. OXALIPLATIN [Suspect]
     Active Substance: OXALIPLATIN
     Dosage: 177 MG, BIW
     Route: 042
     Dates: start: 20230118
  3. FLUOROURACIL [Suspect]
     Active Substance: FLUOROURACIL
     Indication: Oesophageal adenocarcinoma
     Dosage: 4524 MG, BIW
     Route: 042
     Dates: start: 20220722
  4. FLUOROURACIL [Suspect]
     Active Substance: FLUOROURACIL
     Dosage: 4186 MG, BIW
     Route: 042
     Dates: start: 20230118
  5. OPDIVO [Suspect]
     Active Substance: NIVOLUMAB
     Indication: Oesophageal adenocarcinoma
     Dosage: 240 MG, BIW
     Route: 042
     Dates: start: 20220722
  6. OPDIVO [Suspect]
     Active Substance: NIVOLUMAB
     Dosage: 240 MG, BIW
     Route: 042
     Dates: start: 20230118
  7. PANTOPRAZOLE [Concomitant]
     Active Substance: PANTOPRAZOLE
     Indication: Prophylaxis
     Dosage: 40 MG, QD
     Route: 048
     Dates: start: 20221116
  8. RAMIPRIL [Concomitant]
     Active Substance: RAMIPRIL
     Indication: Prophylaxis
     Dosage: 5 MG, BID
     Route: 048
     Dates: start: 20220628
  9. AMLODIPINE [Concomitant]
     Active Substance: AMLODIPINE BESYLATE
     Indication: Product used for unknown indication
     Dosage: 5 MG, QD
     Route: 048
     Dates: start: 20220629
  10. METOPROLOL SUCCINATE [Concomitant]
     Active Substance: METOPROLOL SUCCINATE
     Indication: Prophylaxis
     Dosage: 95 MG, QD
     Route: 048
     Dates: start: 20220628, end: 20220715
  11. METOPROLOL SUCCINATE [Concomitant]
     Active Substance: METOPROLOL SUCCINATE
     Dosage: 47.5 MG, QD
     Route: 048
     Dates: start: 20220716
  12. TAMSULOSIN [Concomitant]
     Active Substance: TAMSULOSIN
     Indication: Prophylaxis
     Dosage: 0.4 MG, QD
     Route: 048
     Dates: start: 20220629

REACTIONS (2)
  - Pneumonia [Recovered/Resolved]
  - Micrococcus infection [Unknown]

NARRATIVE: CASE EVENT DATE: 20230129
